FAERS Safety Report 8186993-8 (Version None)
Quarter: 2012Q1

REPORT INFORMATION
  Report Type: 
  Country: None (occurrence: None)
  Receive Date: 20120213
  Receipt Date: 20120112
  Transmission Date: 20120608
  Serious: No
  Sender: FDA-Public Use
  Company Number: 1000027014

PATIENT
  Age: 74 Year
  Sex: Male

DRUGS (6)
  1. SIMVASTATIN [Concomitant]
  2. METOPROLOL SUCCINATE [Concomitant]
  3. SAVELLA [Suspect]
     Indication: FIBROMYALGIA
     Dosage: SEE IMAGE
     Route: 048
     Dates: start: 20110101
  4. SAVELLA [Suspect]
     Indication: FIBROMYALGIA
     Dosage: SEE IMAGE
     Route: 048
     Dates: start: 20110101, end: 20110101
  5. SAVELLA [Suspect]
     Indication: FIBROMYALGIA
     Dosage: SEE IMAGE
     Route: 048
     Dates: start: 20110101, end: 20110101
  6. SAVELLA [Suspect]
     Indication: FIBROMYALGIA
     Dosage: SEE IMAGE
     Route: 048
     Dates: start: 20110101, end: 20110101

REACTIONS (1)
  - SEASONAL ALLERGY [None]
